FAERS Safety Report 10268412 (Version 1)
Quarter: 2014Q2

REPORT INFORMATION
  Report Type: Spontaneous
  Country: US (occurrence: None)
  Receive Date: 20140625
  Receipt Date: 20140625
  Transmission Date: 20141212
  Serious: Yes (Death)
  Sender: FDA-Public Use
  Company Number: 2014RT000077

PATIENT
  Age: 19 Year
  Sex: Male

DRUGS (2)
  1. PROCYSBI [Suspect]
     Indication: AMINO ACID LEVEL ABNORMAL
     Route: 048
  2. CYSTARAN [Concomitant]

REACTIONS (1)
  - Death [None]
